FAERS Safety Report 7627100-7 (Version None)
Quarter: 2011Q3

REPORT INFORMATION
  Report Type: 
  Country: None (occurrence: None)
  Receive Date: 20110721
  Receipt Date: 20110715
  Transmission Date: 20111222
  Serious: Yes (Other)
  Sender: FDA-Public Use
  Company Number: US-SANOFI-AVENTIS-2011SA045793

PATIENT
  Age: 80 Year
  Sex: Female

DRUGS (7)
  1. LANTUS [Suspect]
     Dosage: DOSE:15 UNIT(S)
     Route: 058
     Dates: start: 20080101
  2. METOPROLOL TARTRATE [Concomitant]
  3. ALLEGRA [Concomitant]
  4. COZAAR [Concomitant]
  5. SINGULAIR [Concomitant]
  6. SOLOSTAR [Suspect]
     Dates: start: 20080101
  7. URECHOLINE [Concomitant]

REACTIONS (7)
  - FALL [None]
  - EATING DISORDER [None]
  - RIB FRACTURE [None]
  - LOSS OF CONSCIOUSNESS [None]
  - NERVE INJURY [None]
  - FUNCTIONAL GASTROINTESTINAL DISORDER [None]
  - DYSURIA [None]
